FAERS Safety Report 20227978 (Version 1)
Quarter: 2021Q4

REPORT INFORMATION
  Report Type: Report from Study
  Country: ES (occurrence: None)
  Receive Date: 20211224
  Receipt Date: 20211224
  Transmission Date: 20220303
  Serious: Yes (Other)
  Sender: FDA-Public Use
  Company Number: 2021A884721

PATIENT
  Age: 12 Year
  Sex: Female

DRUGS (2)
  1. ESOMEPRAZOLE [Interacting]
     Active Substance: ESOMEPRAZOLE
     Indication: Eosinophilic oesophagitis
     Route: 048
  2. COW MILK [Interacting]
     Active Substance: COW MILK
     Route: 065

REACTIONS (4)
  - Food interaction [Unknown]
  - Respiratory distress [Recovered/Resolved]
  - Anaphylactic reaction [Recovered/Resolved]
  - Urticaria [Recovered/Resolved]
